FAERS Safety Report 19144153 (Version 1)
Quarter: 2021Q2

REPORT INFORMATION
  Report Type: Spontaneous
  Country: US (occurrence: US)
  Receive Date: 20210416
  Receipt Date: 20210416
  Transmission Date: 20210717
  Serious: No
  Sender: FDA-Public Use
  Company Number: US-SA-2021SA123717

PATIENT
  Age: 26 Year
  Sex: Female

DRUGS (4)
  1. DUPIXENT [Suspect]
     Active Substance: DUPILUMAB
     Indication: DERMATITIS ATOPIC
     Route: 058
     Dates: start: 202003
  2. CETAPHIL [CETYL ALCOHOL;TOCOPHERYL ACETATE] [Concomitant]
  3. CETAPHIL CLEANSERS OILY SKIN [Concomitant]
  4. CENTRUM WOMEN [Concomitant]
     Active Substance: VITAMINS

REACTIONS (7)
  - Sleep disorder [Unknown]
  - Skin fissures [Unknown]
  - Pruritus [Unknown]
  - Eczema [Recovered/Resolved]
  - Skin exfoliation [Unknown]
  - Dry skin [Unknown]
  - Eczema weeping [Unknown]

NARRATIVE: CASE EVENT DATE: 2021
